FAERS Safety Report 8261395-4 (Version None)
Quarter: 2012Q2

REPORT INFORMATION
  Report Type: 
  Country: None (occurrence: None)
  Receive Date: 20120402
  Receipt Date: 20120329
  Transmission Date: 20120825
  Serious: Yes (Hospitalization)
  Sender: FDA-Public Use
  Company Number: SP05589

PATIENT
  Age: 78 Year
  Sex: Female

DRUGS (3)
  1. BISOPROLOL FUMARATE [Concomitant]
  2. DIPIRIVAN [Concomitant]
  3. OSMOPREP [Suspect]
     Indication: BOWEL PREPARATION
     Dosage: (32 DOSAGE FORMS),ORAL
     Route: 048
     Dates: start: 20111204, end: 20111204

REACTIONS (2)
  - PROCEDURAL COMPLICATION [None]
  - ATRIAL FIBRILLATION [None]
